FAERS Safety Report 8909264 (Version 1)
Quarter: 2012Q4

REPORT INFORMATION
  Report Type: Spontaneous
  Country: US (occurrence: None)
  Receive Date: 20121026
  Receipt Date: 20121026
  Transmission Date: 20130627
  Serious: Yes (Hospitalization)
  Sender: FDA-Public Use
  Company Number: GAM-137-12-US

PATIENT
  Age: 50 Year
  Sex: Female

DRUGS (1)
  1. IMMUNE GLOBULIN HUMAN [Suspect]
     Dates: start: 20100726, end: 20100730

REACTIONS (1)
  - Myocardial infarction [None]
